FAERS Safety Report 12305033 (Version 1)
Quarter: 2016Q2

REPORT INFORMATION
  Report Type: Spontaneous
  Country: US (occurrence: None)
  Receive Date: 20160425
  Receipt Date: 20160425
  Transmission Date: 20160815
  Serious: No
  Sender: FDA-Public Use
  Company Number: None

PATIENT
  Age: 77 Year
  Sex: Female

DRUGS (4)
  1. ATORVASTATIN 10MG TAB [Concomitant]
  2. LISINOPRIL 20MG TABLETS [Concomitant]
     Active Substance: LISINOPRIL
  3. AMLODIPINE-BENAZEPRIL 5-10MG TEVA [Suspect]
     Active Substance: AMLODIPINE BESYLATE\BENAZEPRIL HYDROCHLORIDE
     Route: 048
  4. METOPROLOL TARTRATE. [Concomitant]
     Active Substance: METOPROLOL TARTRATE
     Route: 048

REACTIONS (1)
  - Alopecia [None]
